FAERS Safety Report 7117248-8 (Version None)
Quarter: 2010Q4

REPORT INFORMATION
  Report Type: 
  Country: None (occurrence: None)
  Receive Date: 20101122
  Receipt Date: 20101115
  Transmission Date: 20110411
  Serious: Yes (Other)
  Sender: FDA-Public Use
  Company Number: CN-SANOFI-AVENTIS-2010SA069007

PATIENT
  Age: 72 Year
  Sex: Female
  Weight: 72.5 kg

DRUGS (3)
  1. AMARYL [Suspect]
     Indication: DIABETES MELLITUS
     Route: 048
     Dates: start: 20100701
  2. ALL OTHER THERAPEUTIC PRODUCTS [Concomitant]
     Indication: BRADYCARDIA
     Route: 048
  3. GLUCOBAY [Concomitant]
     Indication: DIABETES MELLITUS
     Route: 048
     Dates: start: 20100710

REACTIONS (7)
  - ABDOMINAL DISTENSION [None]
  - BRADYCARDIA [None]
  - CONDITION AGGRAVATED [None]
  - HYPERHIDROSIS [None]
  - HYPOGLYCAEMIC SEIZURE [None]
  - NASOPHARYNGITIS [None]
  - WEIGHT INCREASED [None]
